FAERS Safety Report 10341529 (Version 1)
Quarter: 2014Q3

REPORT INFORMATION
  Report Type: Spontaneous
  Country: US (occurrence: None)
  Receive Date: 20140724
  Receipt Date: 20140724
  Transmission Date: 20150326
  Serious: Yes (Death)
  Sender: FDA-Public Use
  Company Number: None

PATIENT
  Age: 12 Year
  Sex: Female
  Weight: 52.5 kg

DRUGS (12)
  1. VANCOMYCIN [Concomitant]
     Active Substance: VANCOMYCIN
  2. ISOPROTERENOL [Concomitant]
     Active Substance: ISOPROTERENOL
  3. 3% SODIUM CHLORIDE [Concomitant]
  4. MEROPENEM. [Concomitant]
     Active Substance: MEROPENEM
  5. NOREPINEPHRINE [Concomitant]
     Active Substance: NOREPINEPHRINE\NOREPINEPHRINE BITARTRATE
  6. FENTANYL. [Concomitant]
     Active Substance: FENTANYL
  7. CEFTAZIDIME. [Concomitant]
     Active Substance: CEFTAZIDIME
  8. EPINEPHRINE. [Concomitant]
     Active Substance: EPINEPHRINE
  9. PROPOFOL. [Suspect]
     Active Substance: PROPOFOL
  10. LEVETIRACETAM. [Concomitant]
     Active Substance: LEVETIRACETAM
  11. MANNITOL. [Concomitant]
     Active Substance: MANNITOL
  12. VASOPRESSIN [Concomitant]
     Active Substance: VASOPRESSIN

REACTIONS (13)
  - Subdural haematoma [None]
  - Metabolic acidosis [None]
  - Ulna fracture [None]
  - Radius fracture [None]
  - Intracranial pressure increased [None]
  - Pupil fixed [None]
  - Skull fractured base [None]
  - Tooth fracture [None]
  - Convulsion [None]
  - Brain oedema [None]
  - Road traffic accident [None]
  - Hyperventilation [None]
  - Pulseless electrical activity [None]

NARRATIVE: CASE EVENT DATE: 20140702
